FAERS Safety Report 20655172 (Version 8)
Quarter: 2024Q2

REPORT INFORMATION
  Report Type: Report from Study
  Country: IN (occurrence: IN)
  Receive Date: 20220330
  Receipt Date: 20240623
  Transmission Date: 20240716
  Serious: Yes (Death, Life-Threatening, Hospitalization, Disabling, Other)
  Sender: FDA-Public Use
  Company Number: IN-BAYER-2022A044074

PATIENT
  Age: 82 Year
  Sex: Female
  Weight: 64 kg

DRUGS (38)
  1. RIVAROXABAN [Suspect]
     Active Substance: RIVAROXABAN
     Indication: Atrial fibrillation
     Dosage: 15 MG, QD
     Route: 048
     Dates: start: 20220228, end: 20220320
  2. SELOKEN XL [Concomitant]
     Dosage: 50 MG, ONCE
     Route: 048
     Dates: start: 20200307, end: 20220228
  3. SELOKEN XL [Concomitant]
     Dosage: 50 MG, BID
     Route: 048
     Dates: start: 20220228
  4. METOPROLOL SUCCINATE [Concomitant]
     Active Substance: METOPROLOL SUCCINATE
     Dosage: 50 MG, QD
     Route: 048
     Dates: start: 20200307, end: 20220228
  5. METOPROLOL SUCCINATE [Concomitant]
     Active Substance: METOPROLOL SUCCINATE
     Dosage: 50 MG, BID
     Route: 048
     Dates: start: 20220228
  6. TORSEMIDE [Concomitant]
     Active Substance: TORSEMIDE
     Dosage: 5 MG, ONCE
     Route: 048
     Dates: start: 20200307, end: 20220228
  7. TORSEMIDE [Concomitant]
     Active Substance: TORSEMIDE
     Dosage: 10 MG, QD
     Route: 048
     Dates: start: 20220228
  8. CARDACE [RAMIPRIL] [Concomitant]
     Dosage: 2.5 MG, ONCE
     Route: 048
     Dates: start: 20220312
  9. BECOSULES [ASCORBIC ACID;VITAMIN B NOS] [Concomitant]
     Dosage: UNK UNK, ONCE
     Route: 048
     Dates: start: 20220312
  10. OXRA [Concomitant]
     Dosage: 10 MG, ONCE
     Route: 048
     Dates: start: 20220312
  11. ASPIRIN\ATORVASTATIN [Concomitant]
     Active Substance: ASPIRIN\ATORVASTATIN
     Dosage: 95 MG, ONCE
     Route: 048
     Dates: start: 20220320, end: 20220324
  12. DURON [AMIODARONE HYDROCHLORIDE] [Concomitant]
     Dosage: 150 MG
     Route: 042
     Dates: start: 20220320, end: 20220325
  13. DURON [AMIODARONE HYDROCHLORIDE] [Concomitant]
     Dosage: 200 MG, BID
     Route: 048
     Dates: start: 20220325
  14. LMWX [Concomitant]
     Dosage: 40 MG, ONCE
     Route: 058
     Dates: start: 20220320, end: 20220321
  15. PANSA [Concomitant]
     Dosage: 40 MG, ONCE
     Route: 048
     Dates: start: 20220320, end: 20220324
  16. GLEDEPA [Concomitant]
     Dosage: 10 MG, ONCE
     Route: 048
     Dates: start: 20220320, end: 20220324
  17. TOLVAPTAN [Concomitant]
     Active Substance: TOLVAPTAN
     Dosage: 15 MG, ONCE
     Route: 048
     Dates: start: 20220321
  18. LOX [LIDOCAINE] [Concomitant]
     Dosage: UNK UNK, ONCE
     Route: 061
     Dates: start: 20220321, end: 20220321
  19. DOBUSTAT [Concomitant]
     Dosage: 250 MG, ONCE
     Route: 042
     Dates: start: 20220321, end: 20220321
  20. SODIUM CHLORIDE [Concomitant]
     Active Substance: SODIUM CHLORIDE
     Dosage: 500 ML, TID
     Route: 042
     Dates: start: 20220322, end: 20220322
  21. SODIUM CHLORIDE [Concomitant]
     Active Substance: SODIUM CHLORIDE
     Dosage: 100 ML, TID
     Route: 042
     Dates: start: 20220322, end: 20220324
  22. SODIUM CHLORIDE [Concomitant]
     Active Substance: SODIUM CHLORIDE
     Dosage: 100 ML, QID
     Route: 042
     Dates: start: 20220324, end: 20220324
  23. ADRENOR [Concomitant]
     Dosage: 4 MG, ONCE
     Route: 042
     Dates: start: 20220322, end: 20220322
  24. LASIX [Concomitant]
     Active Substance: FUROSEMIDE
     Dosage: 10 MG/ML
     Route: 042
     Dates: start: 20220322, end: 20220322
  25. RL [CALCIUM CHLORIDE;POTASSIUM CHLORIDE;SODIUM CHLORIDE;SODIUM LACTATE [Concomitant]
     Dosage: 500 ML, BID
     Route: 042
     Dates: start: 20220322, end: 20220322
  26. FEPANIL [Concomitant]
     Dosage: 100 ML, TID
     Route: 042
     Dates: start: 20220322, end: 20220322
  27. PIPERACILLIN SODIUM\TAZOBACTAM SODIUM [Concomitant]
     Active Substance: PIPERACILLIN SODIUM\TAZOBACTAM SODIUM
     Dosage: 2.25 G, TID
     Route: 042
     Dates: start: 20220322, end: 20220324
  28. HEPAGLAN [HEPARIN] [Concomitant]
     Dosage: 25000 IU, ONCE
     Route: 058
     Dates: start: 20220322, end: 20220322
  29. THIAMINE [Concomitant]
     Active Substance: THIAMINE
     Dosage: 200 MG, ONCE
     Route: 042
     Dates: start: 20220323, end: 20220325
  30. ABZORB [Concomitant]
     Dosage: 1, APPLICATION, ONCE
     Route: 061
     Dates: start: 20220323, end: 20220323
  31. ONABET [SERTACONAZOLE NITRATE] [Concomitant]
     Dosage: 1, APPLICATION, ONCE
     Route: 061
     Dates: start: 20220323, end: 20220323
  32. PROTEIN [Concomitant]
     Active Substance: PROTEIN
     Dosage: 1, SCOOP, TID
     Route: 048
     Dates: start: 20220324
  33. METOPROLOL [Concomitant]
     Active Substance: METOPROLOL
     Dosage: 25 MG, BID
     Route: 048
     Dates: start: 20220324, end: 20220328
  34. EPICETAM [Concomitant]
     Dosage: 100 MG, BID
     Route: 042
     Dates: start: 20220324
  35. CLOHEX [Concomitant]
     Dosage: 1, APPLICATION, BID
     Route: 048
     Dates: start: 20220325
  36. HEPARIN [Concomitant]
     Active Substance: HEPARIN SODIUM
     Dosage: 25000 IU, QD
     Route: 058
     Dates: start: 20220322, end: 20220322
  37. SODIUM CHLORIDE FRESENIUS [Concomitant]
     Dosage: 100 ML, TID
     Route: 042
     Dates: start: 20220322, end: 20220324
  38. CLOTRIMAZOLE COX [Concomitant]
     Dosage: UNK
     Dates: start: 20220323, end: 20220323

REACTIONS (9)
  - Haemorrhagic cerebral infarction [Fatal]
  - Dyspnoea exertional [Recovered/Resolved]
  - Bradycardia [Recovered/Resolved]
  - Dilated cardiomyopathy [Not Recovered/Not Resolved]
  - Cardiac failure congestive [Not Recovered/Not Resolved]
  - Haemorrhagic stroke [Unknown]
  - Intertrigo [Unknown]
  - Hyponatraemia [Recovered/Resolved]
  - Hyponatraemia [Recovered/Resolved]

NARRATIVE: CASE EVENT DATE: 20220314
